FAERS Safety Report 7580376-7 (Version None)
Quarter: 2011Q2

REPORT INFORMATION
  Report Type: 
  Country: None (occurrence: None)
  Receive Date: 20110629
  Receipt Date: 20110617
  Transmission Date: 20111010
  Serious: Yes (Hospitalization)
  Sender: FDA-Public Use
  Company Number: CA-JNJFOC-20110609642

PATIENT
  Sex: Male
  Weight: 79.7 kg

DRUGS (2)
  1. IMURAN [Concomitant]
     Route: 065
  2. REMICADE [Suspect]
     Indication: CROHN'S DISEASE
     Dosage: A TOTAL OF 23 INFUSIONS
     Route: 042

REACTIONS (1)
  - BACK INJURY [None]
